FAERS Safety Report 6962317-6 (Version None)
Quarter: 2010Q3

REPORT INFORMATION
  Report Type: 
  Country: None (occurrence: None)
  Receive Date: 20100902
  Receipt Date: 20100820
  Transmission Date: 20110219
  Serious: Yes (Other)
  Sender: FDA-Public Use
  Company Number: FI-ELI_LILLY_AND_COMPANY-FI201008005978

PATIENT
  Sex: Female

DRUGS (5)
  1. ZYPREXA [Suspect]
     Indication: ANXIETY
     Dosage: 7.5 MG, UNK
     Route: 065
     Dates: start: 20100726, end: 20100811
  2. VALPROATE SODIUM [Concomitant]
     Indication: EPILEPSY
     Dosage: 500 MG, 2/D
     Route: 048
  3. THYROXIN [Concomitant]
     Indication: HYPOTHYROIDISM
     Dosage: 0.1 MG, DAILY (1/D)
     Route: 048
     Dates: start: 20100623
  4. CIPRALEX [Concomitant]
     Dosage: 10 MG, DAILY (1/D)
     Route: 048
  5. QUETIAPINE [Concomitant]
     Dosage: 25 MG, DAILY (1/D)
     Route: 048

REACTIONS (5)
  - ALOPECIA [None]
  - GENERALISED OEDEMA [None]
  - MUCOSAL ULCERATION [None]
  - OEDEMA [None]
  - SWELLING FACE [None]
